FAERS Safety Report 6986976-7 (Version None)
Quarter: 2010Q3

REPORT INFORMATION
  Report Type: 
  Country: None (occurrence: None)
  Receive Date: 20100916
  Receipt Date: 20100909
  Transmission Date: 20110219
  Serious: Yes (Hospitalization)
  Sender: FDA-Public Use
  Company Number: US-BIOGENIDEC-2010BI031728

PATIENT
  Age: 43 Year
  Sex: Female

DRUGS (2)
  1. AVONEX [Suspect]
     Indication: MULTIPLE SCLEROSIS
     Route: 030
     Dates: start: 20010315, end: 20081102
  2. AVONEX [Suspect]
     Route: 030
     Dates: start: 20080510

REACTIONS (2)
  - DRUG DELIVERY DEVICE IMPLANTATION [None]
  - WOUND [None]
